FAERS Safety Report 7317983-2 (Version None)
Quarter: 2011Q1

REPORT INFORMATION
  Report Type: 
  Country: None (occurrence: None)
  Receive Date: 20110227
  Receipt Date: 20110131
  Transmission Date: 20110831
  Serious: No
  Sender: FDA-Public Use
  Company Number: US-B.I. PHARMACEUTICALS,INC./RIDGEFIELD-2011-BP-00487BP

PATIENT
  Sex: Female

DRUGS (7)
  1. VITAMIN-MINERAL COMPOUND TAB [Concomitant]
     Indication: EYE DISORDER
     Route: 048
  2. PRADAXA [Suspect]
     Indication: ATRIAL FIBRILLATION
     Dosage: 300 MG
     Route: 048
     Dates: start: 20101224
  3. DIGOXIN [Concomitant]
     Indication: CARDIAC DISORDER
     Route: 048
  4. DILTIAZEM [Concomitant]
     Indication: CARDIAC DISORDER
     Dosage: 120 MG
     Route: 048
  5. ASPIRIN [Concomitant]
     Indication: CARDIAC DISORDER
     Dosage: 81 MG
     Route: 048
  6. OSCAL [Concomitant]
     Indication: SUPPLEMENTATION THERAPY
     Dosage: 500 MG
     Route: 048
  7. LUNESTA [Concomitant]
     Indication: SLEEP DISORDER
     Dosage: 0.5 MG
     Route: 048

REACTIONS (3)
  - VOMITING [None]
  - MALAISE [None]
  - CHILLS [None]
